FAERS Safety Report 5044496-3 (Version None)
Quarter: 2006Q3

REPORT INFORMATION
  Report Type: 
  Country: None (occurrence: None)
  Receive Date: 20060706
  Receipt Date: 20060704
  Transmission Date: 20061208
  Serious: Yes (Life-Threatening)
  Sender: FDA-Public Use
  Company Number: FR-GLAXOSMITHKLINE-B0429785A

PATIENT
  Age: 45 Year
  Sex: Female

DRUGS (10)
  1. AUGMENTIN '125' [Suspect]
     Route: 042
     Dates: start: 20060329
  2. ACUPAN [Concomitant]
     Route: 048
     Dates: start: 20060329
  3. PROFENID [Concomitant]
     Route: 048
     Dates: start: 20060329
  4. METRONIDAZOLE [Concomitant]
     Route: 042
     Dates: start: 20060329
  5. ACETAMINOPHEN [Concomitant]
     Route: 042
     Dates: start: 20060329
  6. ATARAX [Concomitant]
     Route: 065
  7. XANAX [Concomitant]
     Route: 065
  8. DIPRIVAN [Concomitant]
     Route: 065
     Dates: start: 20060329
  9. SUFENTA [Concomitant]
     Route: 065
     Dates: start: 20060329
  10. DESFLURANE [Concomitant]
     Route: 065
     Dates: start: 20060329

REACTIONS (10)
  - ABDOMINAL PAIN [None]
  - ANAPHYLACTIC SHOCK [None]
  - BRONCHOSPASM [None]
  - CYANOSIS [None]
  - ERYTHEMA [None]
  - GENERALISED OEDEMA [None]
  - HYPOTENSION [None]
  - PERIPHERAL ISCHAEMIA [None]
  - RESPIRATORY DISTRESS [None]
  - TRYPTASE INCREASED [None]
